FAERS Safety Report 8404169-3 (Version None)
Quarter: 2012Q2

REPORT INFORMATION
  Report Type: 
  Country: None (occurrence: None)
  Receive Date: 20120601
  Receipt Date: 20120530
  Transmission Date: 20120825
  Serious: Yes (Life-Threatening, Hospitalization)
  Sender: FDA-Public Use
  Company Number: CHPA2012US011089

PATIENT
  Sex: Female

DRUGS (3)
  1. ANALGESICS [Concomitant]
     Indication: ARTHRALGIA
     Dosage: UNK
  2. TRAMADOL HCL [Concomitant]
     Indication: ARTHRALGIA
     Dosage: UNK
  3. VOLTAREN [Suspect]
     Indication: ARTHRALGIA
     Dosage: UNK, UNK
     Route: 061

REACTIONS (6)
  - OFF LABEL USE [None]
  - PAIN IN EXTREMITY [None]
  - FEELING ABNORMAL [None]
  - DRUG ADMINISTERED AT INAPPROPRIATE SITE [None]
  - FOOD POISONING [None]
  - THERAPEUTIC RESPONSE UNEXPECTED [None]
